FAERS Safety Report 4454714-8 (Version None)
Quarter: 2004Q3

REPORT INFORMATION
  Report Type: 
  Country: None (occurrence: None)
  Receive Date: 20040825
  Receipt Date: 20040312
  Transmission Date: 20050211
  Serious: Yes (Hospitalization, Other)
  Sender: FDA-Public Use
  Company Number: 23351 (0)

PATIENT
  Age: 67 Year
  Sex: Male

DRUGS (7)
  1. TAMBOCOR [Suspect]
     Indication: ATRIAL FIBRILLATION
     Dosage: 100 MG (50 MG, 2 IN 1 DAY (S)), ORAL
     Route: 048
     Dates: start: 20040216, end: 20040225
  2. PROZAC [Suspect]
  3. LAMICTAL [Suspect]
  4. CARDIZEM [Suspect]
  5. COUMADIN [Suspect]
  6. VOLTAREN [Suspect]
  7. MULTIVITAMENS [Concomitant]

REACTIONS (1)
  - CONVULSION [None]
